FAERS Safety Report 23587888 (Version 1)
Quarter: 2024Q1

REPORT INFORMATION
  Report Type: Spontaneous
  Country: IT (occurrence: IT)
  Receive Date: 20240301
  Receipt Date: 20240301
  Transmission Date: 20240409
  Serious: No
  Sender: FDA-Public Use
  Company Number: None

PATIENT
  Age: 87 Year
  Sex: Male

DRUGS (2)
  1. RANEXA [Suspect]
     Active Substance: RANOLAZINE
     Route: 048
     Dates: start: 20240112, end: 20240129
  2. RANEXA [Suspect]
     Active Substance: RANOLAZINE
     Route: 048
     Dates: start: 202401

REACTIONS (4)
  - Fatigue [Unknown]
  - Visual impairment [Unknown]
  - Inappropriate schedule of product administration [Recovered/Resolved]
  - Underdose [Recovered/Resolved]

NARRATIVE: CASE EVENT DATE: 20240112
